FAERS Safety Report 5929414-5 (Version None)
Quarter: 2008Q3

REPORT INFORMATION
  Report Type: 
  Country: None (occurrence: None)
  Receive Date: 20080922
  Receipt Date: 20071029
  Transmission Date: 20090109
  Serious: Yes (Other)
  Sender: FDA-Public Use
  Company Number: PHEH2007US13898

PATIENT
  Age: 70 Year
  Sex: Female

DRUGS (2)
  1. MIACALCIN [Suspect]
     Dosage: , INTRANASAL
  2. FOSAMAX [Suspect]

REACTIONS (4)
  - DEAFNESS [None]
  - GASTROOESOPHAGEAL REFLUX DISEASE [None]
  - NASAL CONGESTION [None]
  - SINUSITIS [None]
